FAERS Safety Report 10964789 (Version 3)
Quarter: 2015Q2

REPORT INFORMATION
  Report Type: Report from Study
  Country: ES (occurrence: ES)
  Receive Date: 20150330
  Receipt Date: 20150520
  Transmission Date: 20150821
  Serious: Yes (Death, Hospitalization)
  Sender: FDA-Public Use
  Company Number: ES-BRISTOL-MYERS SQUIBB COMPANY-19020882

PATIENT
  Age: 67 Year
  Sex: Male

DRUGS (13)
  1. GLICLAZIDE [Concomitant]
     Active Substance: GLICLAZIDE
     Indication: PRODUCT USED FOR UNKNOWN INDICATION
     Dosage: UNK
     Route: 065
     Dates: start: 20121211, end: 20130616
  2. FENTANYL. [Concomitant]
     Active Substance: FENTANYL
     Indication: PRODUCT USED FOR UNKNOWN INDICATION
     Dosage: UNK
     Route: 065
     Dates: start: 20121211, end: 20130613
  3. PLACEBO [Suspect]
     Active Substance: UNSPECIFIED INGREDIENT
     Dosage: 10 MG/KG, UNK
     Route: 042
     Dates: start: 20130508, end: 20130619
  4. BLINDED IPILIMUMAB [Suspect]
     Active Substance: IPILIMUMAB
     Dosage: 10 MG/KG, UNK
     Route: 042
     Dates: start: 20130508, end: 20130619
  5. ETOPOSIDE. [Suspect]
     Active Substance: ETOPOSIDE
     Indication: SMALL CELL LUNG CANCER
     Dosage: 167 MG, UNK
     Route: 042
     Dates: start: 20121120, end: 20130125
  6. PLACEBO [Suspect]
     Active Substance: UNSPECIFIED INGREDIENT
     Indication: SMALL CELL LUNG CANCER
     Dosage: 425.6 MG, UNK
     Route: 042
     Dates: start: 20121120, end: 20130123
  7. PLACEBO [Suspect]
     Active Substance: UNSPECIFIED INGREDIENT
     Indication: SMALL CELL LUNG CANCER
     Dosage: 120 ML, UNK
     Route: 042
     Dates: start: 20130104, end: 20130308
  8. BLINDED CARBOPLATIN [Suspect]
     Active Substance: CARBOPLATIN
     Indication: SMALL CELL LUNG CANCER
     Dosage: 425.6 MG, UNK
     Route: 042
     Dates: start: 20121120, end: 20130123
  9. EMPORTAL [Concomitant]
     Indication: PRODUCT USED FOR UNKNOWN INDICATION
     Dosage: UNK
     Route: 065
     Dates: start: 20130525, end: 20130614
  10. OMEPRAZOL                          /00661201/ [Concomitant]
     Active Substance: OMEPRAZOLE
     Indication: PRODUCT USED FOR UNKNOWN INDICATION
     Dosage: UNK
     Route: 065
     Dates: start: 20121029, end: 20130616
  11. BLINDED IPILIMUMAB [Suspect]
     Active Substance: IPILIMUMAB
     Indication: SMALL CELL LUNG CANCER
     Dosage: 120 ML, UNK
     Route: 042
     Dates: start: 20130104, end: 20130308
  12. BLINDED IPILIMUMAB [Suspect]
     Active Substance: IPILIMUMAB
     Indication: SMALL CELL LUNG CANCER
     Dosage: 425.6 MG, UNK
     Route: 042
     Dates: start: 20121120, end: 20130123
  13. METAMIZOLE [Concomitant]
     Active Substance: METAMIZOLE
     Indication: PRODUCT USED FOR UNKNOWN INDICATION
     Dosage: UNK UNK, PRN
     Route: 065
     Dates: start: 20130123, end: 20130616

REACTIONS (2)
  - Pyomyositis [Unknown]
  - General physical health deterioration [Fatal]

NARRATIVE: CASE EVENT DATE: 20130521
